FAERS Safety Report 12048619 (Version 1)
Quarter: 2016Q1

REPORT INFORMATION
  Report Type: Report from Study
  Country: US (occurrence: US)
  Receive Date: 20160208
  Receipt Date: 20160208
  Transmission Date: 20160526
  Serious: Yes (Hospitalization)
  Sender: FDA-Public Use
  Company Number: US-PFIZER INC-2016058035

PATIENT
  Age: 1 Year
  Sex: Male
  Weight: 11 kg

DRUGS (8)
  1. ONDANSETRON [Concomitant]
     Active Substance: ONDANSETRON
     Dosage: UNK
  2. CAMPTOSAR [Suspect]
     Active Substance: IRINOTECAN HYDROCHLORIDE
     Indication: NEOPLASM
     Dosage: 50 MG/M2/DOSE (1.67 MG/KG/DOSE FOR PATIENTS LESS THAN 10 KG) [MAXIMUM DOSE: 100 MG] IV OVER 90 MIN
     Route: 042
     Dates: start: 20160105, end: 20160105
  3. EMLA [Concomitant]
     Active Substance: LIDOCAINE\PRILOCAINE
     Dosage: UNK
  4. BACTRIM [Concomitant]
     Active Substance: SULFAMETHOXAZOLE\TRIMETHOPRIM
     Dosage: UNK
  5. TORISEL [Suspect]
     Active Substance: TEMSIROLIMUS
     Indication: NEOPLASM
     Dosage: 35 MG/M2/DOSE (1.2 MG/KG/DOSE FOR PATIENTS LESS THAN 10 KG) IV OVER 30 MIN ON DAYS 1 AND 8
     Route: 042
     Dates: start: 20160105, end: 20160105
  6. PERIDEX /00016001/ [Concomitant]
     Dosage: UNK
  7. VINCRISTINE SULFATE. [Suspect]
     Active Substance: VINCRISTINE SULFATE
     Dosage: 1.5 MG/M2/DOSE (0.05 MG/KG/DOSE FOR PATIENTS LESS THAN 10 KG) [MAXIMUM DOSE: 2 MG] IV OVER 1 MIN
     Route: 042
     Dates: start: 20160105, end: 20160105
  8. MIRALAX [Concomitant]
     Active Substance: POLYETHYLENE GLYCOL 3350
     Dosage: UNK

REACTIONS (1)
  - Hepatic haemorrhage [Not Recovered/Not Resolved]

NARRATIVE: CASE EVENT DATE: 20160106
